FAERS Safety Report 24648581 (Version 3)
Quarter: 2024Q4

REPORT INFORMATION
  Report Type: Spontaneous
  Country: CZ (occurrence: CZ)
  Receive Date: 20241121
  Receipt Date: 20241205
  Transmission Date: 20250115
  Serious: Yes (Other)
  Sender: MYLAN
  Company Number: CZ-CELLTRION INC.-2024CZ026615

PATIENT
  Age: 25 Year
  Sex: Male

DRUGS (7)
  1. MYCOPHENOLATE MOFETIL [Suspect]
     Active Substance: MYCOPHENOLATE MOFETIL
     Indication: Behcet^s syndrome
     Dosage: UNK
     Route: 065
  2. INFLIXIMAB [Suspect]
     Active Substance: INFLIXIMAB
     Indication: Behcet^s syndrome
     Dosage: UNK (COMBINATION OF INFLIXIMAB, PREDNISONE, AND AZATHIOPRINE)
     Route: 065
  3. ADALIMUMAB [Suspect]
     Active Substance: ADALIMUMAB
     Indication: Behcet^s syndrome
     Dosage: UNK (ADALIMUMAB COMBINED WITH A LOW DOSE OF PREDNISONE AND AZATHIOPRINE WAS INITIATED)
     Route: 065
  4. PREDNISONE [Suspect]
     Active Substance: PREDNISONE
     Indication: Behcet^s syndrome
     Dosage: UNK (COMBINATION OF INFLIXIMAB, PREDNISONE, AND AZATHIOPRINE)
     Route: 065
  5. PREDNISONE [Suspect]
     Active Substance: PREDNISONE
     Dosage: UNK (ADALIMUMAB COMBINED WITH A LOW DOSE OF PREDNISONE AND AZATHIOPRINE WAS INITIATED)
     Route: 065
  6. AZATHIOPRINE [Suspect]
     Active Substance: AZATHIOPRINE
     Indication: Behcet^s syndrome
     Dosage: UNK (COMBINATION OF INFLIXIMAB, PREDNISONE, AND AZATHIOPRINE)
     Route: 065
  7. AZATHIOPRINE [Suspect]
     Active Substance: AZATHIOPRINE
     Dosage: UNK (ADALIMUMAB COMBINED WITH A LOW DOSE OF PREDNISONE AND AZATHIOPRINE WAS INITIATED)
     Route: 065

REACTIONS (6)
  - Macular oedema [Recovered/Resolved]
  - Eye inflammation [Unknown]
  - Latent tuberculosis [Unknown]
  - Drug effective for unapproved indication [Unknown]
  - Off label use [Unknown]
  - Therapeutic product effect decreased [Unknown]
